FAERS Safety Report 5606301-3 (Version None)
Quarter: 2008Q1

REPORT INFORMATION
  Report Type: 
  Country: None (occurrence: None)
  Receive Date: 20080129
  Receipt Date: 20070601
  Transmission Date: 20080703
  Serious: No
  Sender: FDA-Public Use
  Company Number: A0651579A

PATIENT
  Age: 57 Year
  Sex: Male

DRUGS (4)
  1. BUPROPION HYDROCHLORIDE [Suspect]
     Dosage: 75MG PER DAY
     Route: 048
  2. WELLBUTRIN XL [Suspect]
     Dosage: 75MG UNKNOWN
     Route: 048
  3. LITHIUM CARBONATE [Concomitant]
  4. KLONOPIN [Concomitant]

REACTIONS (5)
  - ABDOMINAL PAIN UPPER [None]
  - ANXIETY [None]
  - DRUG INEFFECTIVE [None]
  - NAUSEA [None]
  - TINNITUS [None]
